FAERS Safety Report 4609321-0 (Version None)
Quarter: 2005Q1

REPORT INFORMATION
  Report Type: 
  Country: None (occurrence: None)
  Receive Date: 20050314
  Receipt Date: 20050302
  Transmission Date: 20050727
  Serious: Yes (Death, Other)
  Sender: FDA-Public Use
  Company Number: 05H-056-0292572-00

PATIENT
  Sex: 0

DRUGS (3)
  1. LEUCOVORIN CALCIUM [Suspect]
     Indication: BILE DUCT CANCER
     Dosage: 500 MG/M2, ONCE WEEKLY, INFUSION
  2. FLUOROURACIL [Suspect]
     Indication: BILE DUCT CANCER
     Dosage: 2 MG/M2, ONCE WEEKLY (DAYS 1, 8, 15, 22, 29, 36), INFUSION
  3. CISPLATIN [Suspect]
     Indication: BILE DUCT CANCER
     Dosage: 50 MG/M2, EVERY 2 WEEKS (DAYS 1, 15, 29),  INFUSION

REACTIONS (1)
  - DRUG TOXICITY [None]
